FAERS Safety Report 17671859 (Version 1)
Quarter: 2020Q2

REPORT INFORMATION
  Report Type: Spontaneous
  Country: US (occurrence: US)
  Receive Date: 20200415
  Receipt Date: 20200415
  Transmission Date: 20200713
  Serious: No
  Sender: FDA-Public Use
  Company Number: US-ALKERMES INC.-ALK-2019-002948

PATIENT
  Age: 23 Year
  Sex: Female

DRUGS (1)
  1. VIVITROL [Suspect]
     Active Substance: NALTREXONE
     Indication: DRUG DEPENDENCE
     Dosage: 380 MG, QMO
     Route: 030

REACTIONS (8)
  - Ocular icterus [Unknown]
  - Abdominal pain upper [Unknown]
  - Fatigue [Unknown]
  - Viral infection [Unknown]
  - Injection site reaction [Not Recovered/Not Resolved]
  - Gastrointestinal inflammation [Unknown]
  - Chromaturia [Unknown]
  - Injection site mass [Not Recovered/Not Resolved]

NARRATIVE: CASE EVENT DATE: 201905
